FAERS Safety Report 13592185 (Version 2)
Quarter: 2017Q3

REPORT INFORMATION
  Report Type: Report from Study
  Country: None (occurrence: DE)
  Receive Date: 20170529
  Receipt Date: 20170712
  Transmission Date: 20171127
  Serious: Yes (Hospitalization)
  Sender: FDA-Public Use
  Company Number: DE-ABBVIE-17K-062-1977868-00

PATIENT
  Age: 71 Year
  Sex: Male
  Weight: 70 kg

DRUGS (5)
  1. DUODOPA [Suspect]
     Active Substance: CARBIDOPA\LEVODOPA
     Route: 050
     Dates: start: 20160523, end: 20160707
  2. SPASMEX [Concomitant]
     Active Substance: TROSPIUM CHLORIDE
     Indication: URGE INCONTINENCE
     Route: 048
     Dates: start: 201508
  3. QUETIAPIN [Concomitant]
     Active Substance: QUETIAPINE
     Indication: SLEEP DISORDER
     Route: 048
     Dates: start: 201603
  4. DUODOPA [Suspect]
     Active Substance: CARBIDOPA\LEVODOPA
     Indication: PARKINSON^S DISEASE
     Route: 050
     Dates: start: 20160518, end: 20160523
  5. DUODOPA [Suspect]
     Active Substance: CARBIDOPA\LEVODOPA
     Dosage: 6.3 ML /H, 24 H / DAY
     Route: 050
     Dates: start: 20160707

REACTIONS (4)
  - Fall [Unknown]
  - Polyneuropathy [Not Recovered/Not Resolved]
  - Hypoaesthesia [Unknown]
  - Blood brain barrier defect [Recovering/Resolving]

NARRATIVE: CASE EVENT DATE: 201702
